FAERS Safety Report 6629822-3 (Version None)
Quarter: 2010Q1

REPORT INFORMATION
  Report Type: 
  Country: None (occurrence: None)
  Receive Date: 20100311
  Receipt Date: 20090702
  Transmission Date: 20100710
  Serious: No
  Sender: FDA-Public Use
  Company Number: US-BIOGENIDEC-2009BI020343

PATIENT
  Age: 35 Year
  Sex: Female

DRUGS (4)
  1. AVONEX [Suspect]
     Indication: MULTIPLE SCLEROSIS
     Route: 030
     Dates: start: 20090608
  2. TRAMADOL HCL [Concomitant]
     Indication: FACIAL PAIN
  3. TRAMADOL HCL [Concomitant]
     Indication: EAR PAIN
  4. TRAMADOL HCL [Concomitant]
     Indication: PAIN IN JAW

REACTIONS (1)
  - TEMPOROMANDIBULAR JOINT SYNDROME [None]
